FAERS Safety Report 8519695-6 (Version None)
Quarter: 2012Q3

REPORT INFORMATION
  Report Type: 
  Country: None (occurrence: None)
  Receive Date: 20120719
  Receipt Date: 20120706
  Transmission Date: 20120928
  Serious: Yes (Other)
  Sender: FDA-Public Use
  Company Number: CO-AMGEN-COLSP2012043155

PATIENT
  Age: 44 Year
  Sex: Female

DRUGS (2)
  1. ENALAPRIL MALEATE [Concomitant]
     Indication: BLOOD PRESSURE
     Dosage: 20 MG, 1X/DAY
     Route: 048
     Dates: start: 20030101
  2. ENBREL [Suspect]
     Dosage: 50 MG, WEEKLY
     Route: 058
     Dates: start: 20110801, end: 20120501

REACTIONS (3)
  - POST PROCEDURAL COMPLICATION [None]
  - HAEMORRHOIDS [None]
  - DISEASE RECURRENCE [None]
